FAERS Safety Report 6168953-1 (Version None)
Quarter: 2009Q2

REPORT INFORMATION
  Report Type: 
  Country: None (occurrence: None)
  Receive Date: 20090427
  Receipt Date: 20090423
  Transmission Date: 20091009
  Serious: No
  Sender: FDA-Public Use
  Company Number: US-B.I. PHARMACEUTICALS,INC./RIDGEFIELD-2008-BP-17282BP

PATIENT
  Sex: Male
  Weight: 108.9 kg

DRUGS (1)
  1. FLOMAX [Suspect]
     Indication: NOCTURIA
     Dosage: .4MG

REACTIONS (1)
  - BACK PAIN [None]
